FAERS Safety Report 25868114 (Version 7)
Quarter: 2025Q4

REPORT INFORMATION
  Report Type: Report from Study
  Country: EU (occurrence: EU)
  Receive Date: 20251001
  Receipt Date: 20251208
  Transmission Date: 20260117
  Serious: Yes (Hospitalization, Other)
  Sender: AUROBINDO
  Company Number: EU-AUROBINDO-AUR-APL-2025-048887

PATIENT
  Age: 81 Year
  Sex: Male

DRUGS (78)
  1. PRALATREXATE [Suspect]
     Active Substance: PRALATREXATE
     Indication: Peripheral T-cell lymphoma unspecified stage III
     Dosage: 20 MILLIGRAM/SQ. METER
     Route: 065
     Dates: start: 20250624, end: 20250624
  2. PRALATREXATE [Suspect]
     Active Substance: PRALATREXATE
     Dosage: 20 MILLIGRAM/SQ. METER
     Route: 065
     Dates: start: 20250701, end: 20250701
  3. PRALATREXATE [Suspect]
     Active Substance: PRALATREXATE
     Dosage: 20 MILLIGRAM/SQ. METER
     Route: 065
     Dates: start: 20250715, end: 20250715
  4. PRALATREXATE [Suspect]
     Active Substance: PRALATREXATE
     Dosage: 20 MILLIGRAM/SQ. METER
     Route: 065
     Dates: start: 20250722, end: 20250722
  5. PRALATREXATE [Suspect]
     Active Substance: PRALATREXATE
     Dosage: 20 MILLIGRAM/SQ. METER
     Route: 065
     Dates: start: 20250805, end: 20250805
  6. PRALATREXATE [Suspect]
     Active Substance: PRALATREXATE
     Dosage: 20 MILLIGRAM/SQ. METER
     Route: 065
     Dates: start: 20250819, end: 20250819
  7. PRALATREXATE [Suspect]
     Active Substance: PRALATREXATE
     Dosage: 20 MILLIGRAM/SQ. METER
     Route: 065
     Dates: start: 20250826, end: 20250826
  8. PRALATREXATE [Suspect]
     Active Substance: PRALATREXATE
     Dosage: 20 MILLIGRAM/SQ. METER
     Route: 065
     Dates: start: 20250902, end: 20250902
  9. PRALATREXATE [Suspect]
     Active Substance: PRALATREXATE
     Dosage: 20 MILLIGRAM/SQ. METER
     Route: 065
     Dates: start: 20250929, end: 20250929
  10. PRALATREXATE [Suspect]
     Active Substance: PRALATREXATE
     Dosage: 20 MILLIGRAM/SQ. METER
     Route: 065
     Dates: start: 20251006, end: 20251006
  11. PRALATREXATE [Suspect]
     Active Substance: PRALATREXATE
     Dosage: 20 MILLIGRAM/SQ. METER
     Route: 065
     Dates: start: 20251029, end: 20251029
  12. PRALATREXATE [Suspect]
     Active Substance: PRALATREXATE
     Dosage: 20 MILLIGRAM/SQ. METER
     Route: 065
     Dates: start: 20251105, end: 20251105
  13. CYCLOPHOSPHAMIDE [Suspect]
     Active Substance: CYCLOPHOSPHAMIDE
     Indication: Peripheral T-cell lymphoma unspecified stage III
     Dosage: 750 MILLIGRAM/SQ. METER
     Route: 065
     Dates: start: 20250624, end: 20250624
  14. CYCLOPHOSPHAMIDE [Suspect]
     Active Substance: CYCLOPHOSPHAMIDE
     Dosage: 750 MILLIGRAM/SQ. METER
     Route: 065
     Dates: start: 20250715, end: 20250715
  15. CYCLOPHOSPHAMIDE [Suspect]
     Active Substance: CYCLOPHOSPHAMIDE
     Dosage: 750 MILLIGRAM/SQ. METER
     Route: 065
     Dates: start: 20250805, end: 20250805
  16. CYCLOPHOSPHAMIDE [Suspect]
     Active Substance: CYCLOPHOSPHAMIDE
     Dosage: 750 MILLIGRAM/SQ. METER
     Route: 065
     Dates: start: 20250826, end: 20250826
  17. CYCLOPHOSPHAMIDE [Suspect]
     Active Substance: CYCLOPHOSPHAMIDE
     Dosage: 750 MILLIGRAM/SQ. METER
     Route: 065
     Dates: start: 20250929, end: 20250929
  18. CYCLOPHOSPHAMIDE [Suspect]
     Active Substance: CYCLOPHOSPHAMIDE
     Dosage: 750 MILLIGRAM/SQ. METER
     Route: 065
     Dates: start: 20251029, end: 20251029
  19. ONCOVIN [Suspect]
     Active Substance: VINCRISTINE SULFATE
     Indication: Peripheral T-cell lymphoma unspecified stage III
     Dosage: 1.15 MILLIGRAM/SQ. METER
     Route: 065
     Dates: start: 20250624, end: 20250624
  20. ONCOVIN [Suspect]
     Active Substance: VINCRISTINE SULFATE
     Dosage: 1.15 MILLIGRAM/SQ. METER
     Route: 065
     Dates: start: 20250715, end: 20250715
  21. ONCOVIN [Suspect]
     Active Substance: VINCRISTINE SULFATE
     Dosage: 1.15 MILLIGRAM/SQ. METER
     Route: 065
     Dates: start: 20250805, end: 20250805
  22. ONCOVIN [Suspect]
     Active Substance: VINCRISTINE SULFATE
     Dosage: 1.15 MILLIGRAM/SQ. METER
     Route: 065
     Dates: start: 20250826, end: 20250826
  23. ONCOVIN [Suspect]
     Active Substance: VINCRISTINE SULFATE
     Dosage: 1.22 MILLIGRAM/SQ. METER
     Route: 065
     Dates: start: 20250929, end: 20250929
  24. ONCOVIN [Suspect]
     Active Substance: VINCRISTINE SULFATE
     Dosage: 1.15 MILLIGRAM/SQ. METER
     Route: 065
     Dates: start: 20251029, end: 20251029
  25. PREDNISONE [Suspect]
     Active Substance: PREDNISONE
     Indication: Peripheral T-cell lymphoma unspecified stage III
     Dosage: 100 MILLIGRAM
     Route: 065
  26. PREDNISONE [Suspect]
     Active Substance: PREDNISONE
     Dosage: 100 MILLIGRAM
     Route: 065
  27. PREDNISONE [Suspect]
     Active Substance: PREDNISONE
     Dosage: 100 MILLIGRAM
     Route: 065
  28. PREDNISONE [Suspect]
     Active Substance: PREDNISONE
     Dosage: 100 MILLIGRAM
     Route: 065
  29. PREDNISONE [Suspect]
     Active Substance: PREDNISONE
     Dosage: 100 MILLIGRAM
     Route: 065
  30. PREDNISONE [Suspect]
     Active Substance: PREDNISONE
     Dosage: 100 MILLIGRAM
     Route: 065
  31. FOLIC ACID [Suspect]
     Active Substance: FOLIC ACID
     Indication: Product used for unknown indication
     Dosage: UNK
     Route: 065
  32. ASPIRIN [Concomitant]
     Active Substance: ASPIRIN
     Indication: Prophylaxis
     Dosage: 100 MILLIGRAM, ONCE A DAY
     Dates: start: 20220223
  33. ACETAMINOPHEN [Concomitant]
     Active Substance: ACETAMINOPHEN
     Indication: Pain prophylaxis
     Dosage: 1000 MILLIGRAM, AS NECESSARY
     Dates: start: 20250523
  34. ACETAMINOPHEN [Concomitant]
     Active Substance: ACETAMINOPHEN
     Dosage: 1000 MILLIGRAM, AS NECESSARY
     Dates: start: 20251019, end: 20251020
  35. LORAZEPAM [Concomitant]
     Active Substance: LORAZEPAM
     Indication: Prophylaxis
     Dosage: 1 MILLIGRAM, AS NECESSARY
     Dates: start: 20250523, end: 20250722
  36. LORAZEPAM [Concomitant]
     Active Substance: LORAZEPAM
     Dosage: 1 MILLIGRAM, ONCE A DAY
     Dates: start: 20250723, end: 20250804
  37. LORAZEPAM [Concomitant]
     Active Substance: LORAZEPAM
     Dosage: 1 MILLIGRAM, ONCE A DAY
     Dates: start: 20251019, end: 20251020
  38. METOCLOPRAMIDE [Concomitant]
     Active Substance: METOCLOPRAMIDE
     Indication: Prophylaxis
     Dosage: 10 MILLIGRAM, 3 TIMES A DAY
     Dates: start: 20250610, end: 20250709
  39. FOLIC ACID [Concomitant]
     Active Substance: FOLIC ACID
     Indication: Prophylaxis
     Dosage: 5 MILLIGRAM, ONCE A DAY
     Dates: start: 20250605
  40. RANOLAZINE [Concomitant]
     Active Substance: RANOLAZINE
     Indication: Osteoarthritis
     Dosage: 375 MILLIGRAM, TWO TIMES A DAY
     Dates: start: 20220223
  41. CYANOCOBALAMIN [Concomitant]
     Active Substance: CYANOCOBALAMIN
     Indication: Prophylaxis
     Dosage: 1000 MICROGRAM, ONCE A DAY
     Dates: start: 20250623, end: 20250623
  42. ONDANSETRON [Concomitant]
     Active Substance: ONDANSETRON
     Indication: Prophylaxis
     Dosage: 8 MILLIGRAM, ONCE A DAY
     Dates: start: 20250624, end: 20250624
  43. ONDANSETRON [Concomitant]
     Active Substance: ONDANSETRON
     Dosage: 8 MILLIGRAM, ONCE A DAY
     Dates: start: 20250715, end: 20250715
  44. LACTULOSE [Concomitant]
     Active Substance: LACTULOSE
     Indication: Constipation
     Dosage: 10 GRAM, TWO TIMES A DAY
     Dates: start: 20250704
  45. FILGRASTIM [Concomitant]
     Active Substance: FILGRASTIM
     Indication: Prophylaxis
     Dosage: 300 MICROGRAM, ONCE A DAY
     Dates: start: 20250709, end: 20250713
  46. FILGRASTIM [Concomitant]
     Active Substance: FILGRASTIM
     Dosage: 300 MICROGRAM, ONCE A DAY
     Dates: start: 20250812, end: 20250816
  47. ONDANSETRON [Concomitant]
     Active Substance: ONDANSETRON
     Indication: Prophylaxis
     Dosage: 8 MILLIGRAM, ONCE A DAY
     Dates: start: 20250624, end: 20250624
  48. ONDANSETRON [Concomitant]
     Active Substance: ONDANSETRON
     Dosage: 8 MILLIGRAM, ONCE A DAY
     Dates: start: 20250715, end: 20250715
  49. ONDANSETRON [Concomitant]
     Active Substance: ONDANSETRON
     Dosage: 4 MILLIGRAM, 3 TIMES A DAY
     Dates: start: 20250916, end: 20250919
  50. TRAZODONE [Concomitant]
     Active Substance: TRAZODONE HYDROCHLORIDE
     Indication: Prophylaxis
     Dosage: 100 MILLIGRAM, ONCE A DAY
     Dates: start: 20250722, end: 20250723
  51. FERRIC CARBOXYMALTOSE [Concomitant]
     Active Substance: FERRIC CARBOXYMALTOSE
     Indication: Prophylaxis
     Dosage: 1000 MILLIGRAM, ONCE A DAY
     Dates: start: 20250722, end: 20250722
  52. ZOLPIDEM [Concomitant]
     Active Substance: ZOLPIDEM TARTRATE
     Indication: Prophylaxis
     Dosage: 5 MILLIGRAM, ONCE A DAY
     Dates: start: 20250805
  53. FOSFOMYCIN [Concomitant]
     Active Substance: FOSFOMYCIN
     Indication: Urinary tract infection
     Dosage: 3000 MILLIGRAM, ONCE A DAY
     Dates: start: 20250812, end: 20250812
  54. OMEPRAZOLE [Concomitant]
     Active Substance: OMEPRAZOLE
     Indication: Product used for unknown indication
     Dosage: 40 MILLIGRAM, ONCE A DAY
     Dates: start: 20250916, end: 20250919
  55. OMEPRAZOLE [Concomitant]
     Active Substance: OMEPRAZOLE
     Dosage: 40 MILLIGRAM, ONCE A DAY
     Dates: start: 20251023, end: 20251027
  56. ACETAMINOPHEN [Concomitant]
     Active Substance: ACETAMINOPHEN
     Indication: Product used for unknown indication
     Dosage: 1 GRAM, 3 TIMES A DAY
     Dates: start: 20250916, end: 20250922
  57. PIPERACILLIN [Concomitant]
     Active Substance: PIPERACILLIN
     Indication: Product used for unknown indication
     Dosage: 4 GRAM, 3 TIMES A DAY
     Dates: start: 20250916, end: 20250917
  58. PIPERACILLIN [Concomitant]
     Active Substance: PIPERACILLIN
     Dosage: 4 GRAM, 3 TIMES A DAY
     Dates: start: 20251021, end: 20251021
  59. TAZOBACTAM [Concomitant]
     Active Substance: TAZOBACTAM
     Indication: Product used for unknown indication
     Dosage: 0.5 GRAM, 3 TIMES A DAY
     Dates: start: 20250916, end: 20250917
  60. TAZOBACTAM [Concomitant]
     Active Substance: TAZOBACTAM
     Dosage: 0.5 GRAM, 3 TIMES A DAY
     Dates: start: 20251021, end: 20251021
  61. ENOXAPARIN SODIUM [Concomitant]
     Active Substance: ENOXAPARIN SODIUM
     Indication: Prophylaxis
     Dosage: 40 MILLIGRAM, ONCE A DAY
     Dates: start: 20250917, end: 20250922
  62. ENOXAPARIN SODIUM [Concomitant]
     Active Substance: ENOXAPARIN SODIUM
     Dosage: 40 MILLIGRAM, ONCE A DAY
     Dates: start: 20251023, end: 20251027
  63. CIPROFLOXACIN [Concomitant]
     Active Substance: CIPROFLOXACIN
     Indication: Product used for unknown indication
     Dosage: 500 MILLIGRAM, ONCE A DAY
     Dates: start: 20250917, end: 20250922
  64. CIPROFLOXACIN [Concomitant]
     Active Substance: CIPROFLOXACIN
     Dosage: 750 MILLIGRAM, ONCE A DAY
     Dates: start: 20251019, end: 20251020
  65. SODIUM CITRATE [Concomitant]
     Active Substance: SODIUM CITRATE
     Indication: Constipation
     Dosage: 450 MILLIGRAM, AS NECESSARY
     Dates: start: 20251019, end: 20251019
  66. SODIUM LAURYL SULFOACETATE [Concomitant]
     Active Substance: SODIUM LAURYL SULFOACETATE
     Indication: Constipation
     Dosage: 45 MILLIGRAM, AS NECESSARY
     Dates: start: 20251019, end: 20251019
  67. GLYCERIN [Concomitant]
     Active Substance: GLYCERIN
     Indication: Constipation
     Dosage: 5.4 MILLILITER, AS DIRECTED
     Dates: start: 20251019, end: 20251019
  68. SODIUM PHOSPHATE [Concomitant]
     Active Substance: SODIUM PHOSPHATE
     Indication: Constipation
     Dosage: 130 MILLILITER, AS NECESSARY
     Dates: start: 20251019, end: 20251019
  69. SODIUM PHOSPHATE [Concomitant]
     Active Substance: SODIUM PHOSPHATE
     Dosage: 32 MILLILITER, AS NECESSARY
     Dates: start: 20251019, end: 20251019
  70. AMOXICILLIN [Concomitant]
     Active Substance: AMOXICILLIN
     Indication: Syncope
     Dosage: 1000 MILLIGRAM, 3 TIMES A DAY
     Dates: start: 20251019, end: 20251020
  71. CLAVULANIC ACID [Concomitant]
     Active Substance: CLAVULANIC ACID
     Indication: Syncope
     Dosage: 200 MILLIGRAM, 3 TIMES A DAY
     Dates: start: 20251019, end: 20251020
  72. PANTOPRAZOLE [Concomitant]
     Active Substance: PANTOPRAZOLE
     Indication: Product used for unknown indication
     Dosage: 40 MILLIGRAM, ONCE A DAY
     Dates: start: 20251019, end: 20251020
  73. POLYETHYLENE GLYCOL 4000 [Concomitant]
     Active Substance: POLYETHYLENE GLYCOL 4000
     Indication: Product used for unknown indication
     Dosage: 10 GRAM, 3 TIMES A DAY
     Dates: start: 20251019, end: 20251022
  74. MEROPENEM [Concomitant]
     Active Substance: MEROPENEM
     Indication: Syncope
     Dosage: 1 GRAM, 3 TIMES A DAY
     Dates: start: 20251022, end: 20251022
  75. DAPTOMYCIN [Concomitant]
     Active Substance: DAPTOMYCIN
     Indication: Syncope
     Dosage: 500 MILLIGRAM, ONCE A DAY
     Dates: start: 20251022, end: 20251022
  76. MICONAZOLE NITRATE [Concomitant]
     Active Substance: MICONAZOLE NITRATE
     Indication: Balanoposthitis
     Dosage: 20 MILLIGRAM, TWO TIMES A DAY
     Dates: start: 20251025, end: 20251025
  77. HYDROCORTISONE [Concomitant]
     Active Substance: HYDROCORTISONE
     Indication: Balanoposthitis
     Dosage: 10 MILLIGRAM, TWO TIMES A DAY
     Dates: start: 20251025, end: 20251025
  78. CLOTRIMAZOLE [Concomitant]
     Active Substance: CLOTRIMAZOLE
     Indication: Balanoposthitis
     Dosage: 10 MILLIGRAM/GRAM, TWO TIMES A DAY
     Dates: start: 20251025

REACTIONS (13)
  - Syncope [Recovered/Resolved]
  - Abdominal pain upper [Recovering/Resolving]
  - Pyrexia [Recovered/Resolved]
  - Neutropenia [Recovered/Resolved]
  - Constipation [Recovering/Resolving]
  - Stomatitis [Recovered/Resolved]
  - Dizziness [Recovered/Resolved]
  - Urinary tract infection [Recovered/Resolved]
  - Pleural effusion [Recovering/Resolving]
  - Interstitial lung disease [Recovering/Resolving]
  - Platelet count decreased [Recovered/Resolved]
  - Balanoposthitis [Recovered/Resolved]
  - Muscular weakness [Recovered/Resolved]

NARRATIVE: CASE EVENT DATE: 20250701
